FAERS Safety Report 7249829-5 (Version None)
Quarter: 2011Q1

REPORT INFORMATION
  Report Type: 
  Country: None (occurrence: None)
  Receive Date: 20110128
  Receipt Date: 20100513
  Transmission Date: 20110831
  Serious: No
  Sender: FDA-Public Use
  Company Number: A0859585A

PATIENT
  Sex: Female

DRUGS (3)
  1. COREG [Concomitant]
  2. XANAX [Concomitant]
  3. WELLBUTRIN [Suspect]
     Indication: ANXIETY
     Route: 048

REACTIONS (2)
  - DISSOCIATION [None]
  - TREATMENT NONCOMPLIANCE [None]
